FAERS Safety Report 7733924-8 (Version None)
Quarter: 2011Q3

REPORT INFORMATION
  Report Type: 
  Country: None (occurrence: None)
  Receive Date: 20110907
  Receipt Date: 20110726
  Transmission Date: 20111222
  Serious: No
  Sender: FDA-Public Use
  Company Number: US-BAYER-2011-066889

PATIENT
  Sex: Female

DRUGS (2)
  1. LEVOXYL [Concomitant]
  2. ALEVE (CAPLET) [Suspect]
     Dosage: 4 CAPLETS
     Dates: start: 20110726, end: 20110726

REACTIONS (3)
  - HEADACHE [None]
  - MEDICATION ERROR [None]
  - OROPHARYNGEAL PAIN [None]
